FAERS Safety Report 17453007 (Version 2)
Quarter: 2020Q1

REPORT INFORMATION
  Report Type: Spontaneous
  Country: US (occurrence: US)
  Receive Date: 20200224
  Receipt Date: 20200317
  Transmission Date: 20200409
  Serious: No
  Sender: FDA-Public Use
  Company Number: US-ASTRAZENECA-2020SE23934

PATIENT
  Sex: Male
  Weight: 149.7 kg

DRUGS (9)
  1. LANTUS [Concomitant]
     Active Substance: INSULIN GLARGINE
  2. BYDUREON BCISE [Suspect]
     Active Substance: EXENATIDE
     Indication: TYPE 2 DIABETES MELLITUS
     Route: 058
     Dates: start: 20190924
  3. NOVOLOG [Concomitant]
     Active Substance: INSULIN ASPART
  4. HCTZ [Concomitant]
     Active Substance: HYDROCHLOROTHIAZIDE
  5. METFORMIN [Concomitant]
     Active Substance: METFORMIN HYDROCHLORIDE
  6. PRILOSEC [Concomitant]
     Active Substance: OMEPRAZOLE MAGNESIUM
  7. METOPROLOL. [Concomitant]
     Active Substance: METOPROLOL
  8. LEVEMIR [Concomitant]
     Active Substance: INSULIN DETEMIR
  9. COZAAR [Concomitant]
     Active Substance: LOSARTAN POTASSIUM

REACTIONS (5)
  - Product dispensing issue [Unknown]
  - Injection site haemorrhage [Unknown]
  - Device leakage [Unknown]
  - Intentional product misuse [Unknown]
  - Drug delivery system malfunction [Unknown]
